FAERS Safety Report 16349143 (Version 1)
Quarter: 2019Q2

REPORT INFORMATION
  Report Type: Spontaneous
  Country: HR (occurrence: HR)
  Receive Date: 20190523
  Receipt Date: 20190523
  Transmission Date: 20190711
  Serious: Yes (Other)
  Sender: FDA-Public Use
  Company Number: HR-TEVA-2019-HR-1053257

PATIENT
  Sex: Female

DRUGS (5)
  1. CLOZAPINE. [Suspect]
     Active Substance: CLOZAPINE
     Route: 048
     Dates: start: 20181216, end: 20181216
  2. NORMABEL [Concomitant]
     Active Substance: DIAZEPAM
     Route: 048
  3. VELAFAX [Concomitant]
     Active Substance: VENLAFAXINE HYDROCHLORIDE
     Route: 048
  4. ALCOHOL. [Concomitant]
     Active Substance: ALCOHOL
     Route: 048
     Dates: start: 20181216, end: 20181216
  5. DEPAKINE CHRONO [Concomitant]
     Active Substance: VALPROATE SODIUM
     Route: 048

REACTIONS (2)
  - Mydriasis [Unknown]
  - Intentional overdose [Unknown]

NARRATIVE: CASE EVENT DATE: 20181216
